FAERS Safety Report 6808044-7 (Version None)
Quarter: 2010Q2

REPORT INFORMATION
  Report Type: 
  Country: None (occurrence: None)
  Receive Date: 20100629
  Receipt Date: 20090630
  Transmission Date: 20101027
  Serious: No
  Sender: FDA-Public Use
  Company Number: US-PFIZER INC-2009162423

PATIENT

DRUGS (3)
  1. XANAX [Suspect]
     Dosage: UNK
     Route: 048
     Dates: start: 20090106, end: 20090106
  2. AMBIEN [Suspect]
     Dosage: UNK
     Dates: start: 20090106, end: 20090106
  3. VALIUM [Suspect]
     Dosage: UNK
     Dates: start: 20090106, end: 20090106

REACTIONS (2)
  - DRUG ADMINISTRATION ERROR [None]
  - SOMNOLENCE [None]
